FAERS Safety Report 5534638-5 (Version None)
Quarter: 2007Q4

REPORT INFORMATION
  Report Type: 
  Country: None (occurrence: None)
  Receive Date: 20071205
  Receipt Date: 20071128
  Transmission Date: 20080405
  Serious: Yes (Hospitalization, Other)
  Sender: FDA-Public Use
  Company Number: IE-JNJFOC-20070905434

PATIENT
  Age: 15 Year
  Sex: Male

DRUGS (4)
  1. CONCERTA [Suspect]
     Route: 048
  2. CONCERTA [Suspect]
     Indication: ATTENTION DEFICIT/HYPERACTIVITY DISORDER
     Route: 048
  3. ONE ALPHA [Concomitant]
  4. SERETIDE [Concomitant]
     Indication: ASTHMA

REACTIONS (4)
  - ANXIETY [None]
  - GRAND MAL CONVULSION [None]
  - PARTIAL SEIZURES [None]
  - VISION BLURRED [None]
